FAERS Safety Report 9731371 (Version 1)
Quarter: 2013Q4

REPORT INFORMATION
  Report Type: Spontaneous
  Country: US (occurrence: US)
  Receive Date: 20131203
  Receipt Date: 20131203
  Transmission Date: 20140711
  Serious: No
  Sender: FDA-Public Use
  Company Number: US-NOVEN-13US007790

PATIENT
  Age: 63 Year
  Sex: Male

DRUGS (1)
  1. FENTANYL [Suspect]
     Indication: BACK PAIN
     Dosage: 100 UG/HR, Q 3DAYS
     Route: 062
     Dates: start: 2013, end: 201309

REACTIONS (6)
  - Application site irritation [Recovered/Resolved]
  - Dizziness [Recovered/Resolved]
  - Drug withdrawal syndrome [Recovered/Resolved]
  - Inadequate analgesia [Recovered/Resolved]
  - Drug effect increased [Recovered/Resolved]
  - Product quality issue [Recovered/Resolved]
